FAERS Safety Report 11294908 (Version 1)
Quarter: 2015Q3

REPORT INFORMATION
  Report Type: Spontaneous
  Country: US (occurrence: US)
  Receive Date: 20150723
  Receipt Date: 20150723
  Transmission Date: 20151125
  Serious: No
  Sender: FDA-Public Use
  Company Number: US-ASTRAZENECA-2015SE71052

PATIENT
  Age: 40 Year
  Sex: Female
  Weight: 60 kg

DRUGS (2)
  1. NEXIUM 24HR [Suspect]
     Active Substance: ESOMEPRAZOLE MAGNESIUM
     Indication: ABDOMINAL PAIN UPPER
     Dosage: 22.3MG, 1 CAPSULE, ONCE
     Route: 048
     Dates: start: 20150716, end: 20150716
  2. UNSPECIFIED PAINKILLER [Concomitant]

REACTIONS (5)
  - Abdominal pain [Recovering/Resolving]
  - Crying [Unknown]
  - Product use issue [Unknown]
  - Screaming [Unknown]
  - Drug ineffective for unapproved indication [Unknown]

NARRATIVE: CASE EVENT DATE: 20150716
